FAERS Safety Report 13365651 (Version 1)
Quarter: 2017Q1

REPORT INFORMATION
  Report Type: Spontaneous
  Country: US (occurrence: US)
  Receive Date: 20170323
  Receipt Date: 20170323
  Transmission Date: 20170429
  Serious: No
  Sender: FDA-Public Use
  Company Number: US-WARNER CHILCOTT-2016-001665

PATIENT
  Age: 78 Year
  Sex: Female

DRUGS (5)
  1. ESTRACE [Suspect]
     Active Substance: ESTRADIOL
     Indication: ATROPHIC VULVOVAGINITIS
     Dosage: UNKNOWN
     Route: 061
     Dates: start: 20160525
  2. SIMVASTATIN. [Concomitant]
     Active Substance: SIMVASTATIN
     Indication: BLOOD CHOLESTEROL INCREASED
     Dosage: UNK UNK, UNKNOWN
     Route: 048
  3. FORTICAL                           /00371903/ [Concomitant]
     Indication: MINERAL SUPPLEMENTATION
     Dosage: UNK UNK, UNKNOWN
     Route: 045
  4. ESTRACE [Suspect]
     Active Substance: ESTRADIOL
     Dosage: UNK UNK, UNKNOWN
     Route: 061
  5. THYROID THERAPY [Concomitant]
     Active Substance: UNSPECIFIED INGREDIENT
     Indication: THYROID DISORDER
     Dosage: UNK UNK, UNKNOWN
     Route: 048

REACTIONS (3)
  - Vulvovaginal discomfort [Not Recovered/Not Resolved]
  - Application site discharge [Recovered/Resolved]
  - Nipple pain [Not Recovered/Not Resolved]

NARRATIVE: CASE EVENT DATE: 201606
